FAERS Safety Report 19587838 (Version 1)
Quarter: 2021Q3

REPORT INFORMATION
  Report Type: Spontaneous
  Country: US (occurrence: US)
  Receive Date: 20210720
  Receipt Date: 20210720
  Transmission Date: 20211014
  Serious: Yes (Hospitalization)
  Sender: FDA-Public Use
  Company Number: None

PATIENT
  Age: 71 Year
  Sex: Male
  Weight: 88.9 kg

DRUGS (1)
  1. PEMBROLIZUMAB. [Suspect]
     Active Substance: PEMBROLIZUMAB
     Indication: TONGUE NEOPLASM MALIGNANT STAGE UNSPECIFIED
     Dosage: ?          OTHER FREQUENCY:Q3WK;?
     Route: 042
     Dates: start: 20210521, end: 20210707

REACTIONS (5)
  - Confusional state [None]
  - Injury [None]
  - Fall [None]
  - Hypertension [None]
  - Dizziness [None]

NARRATIVE: CASE EVENT DATE: 20210712
